FAERS Safety Report 4549440-0 (Version None)
Quarter: 2005Q1

REPORT INFORMATION
  Report Type: 
  Country: None (occurrence: None)
  Receive Date: 20050111
  Receipt Date: 20041122
  Transmission Date: 20050727
  Serious: Yes (Hospitalization)
  Sender: FDA-Public Use
  Company Number: ZA-NOVOPROD-240692

PATIENT
  Age: 4 Year
  Sex: Female
  Weight: 15 kg

DRUGS (2)
  1. ACTRAPID HM [Suspect]
     Indication: DIABETES MELLITUS
     Dosage: 2 IU, QD
     Dates: start: 20031201
  2. ACTRAPHANE HM PENSET [Suspect]
     Indication: DIABETES MELLITUS
     Dosage: 12 IU, QD
     Dates: start: 20031201

REACTIONS (4)
  - KETOACIDOSIS [None]
  - MEDICATION ERROR [None]
  - PHARMACEUTICAL PRODUCT COMPLAINT [None]
  - PYREXIA [None]
